FAERS Safety Report 5454995-8 (Version None)
Quarter: 2007Q3

REPORT INFORMATION
  Report Type: 
  Country: None (occurrence: None)
  Receive Date: 20070913
  Receipt Date: 20070830
  Transmission Date: 20080115
  Serious: Yes (Hospitalization)
  Sender: FDA-Public Use
  Company Number: 2007VX002254

PATIENT
  Age: 47 Year
  Sex: Female

DRUGS (3)
  1. TASMAR [Suspect]
     Indication: PARKINSON'S DISEASE
     Dosage: TID
     Dates: start: 20070614
  2. MADOPAR (MADOPAR) [Suspect]
     Indication: PARKINSON'S DISEASE
  3. COZAAR [Concomitant]

REACTIONS (2)
  - PARKINSONISM [None]
  - RASH ERYTHEMATOUS [None]
